FAERS Safety Report 6635752-3 (Version None)
Quarter: 2010Q1

REPORT INFORMATION
  Report Type: 
  Country: None (occurrence: None)
  Receive Date: 20100310
  Receipt Date: 20100222
  Transmission Date: 20100710
  Serious: Yes (Hospitalization, Other)
  Sender: FDA-Public Use
  Company Number: AUR-APL-2010-00558

PATIENT
  Sex: Female

DRUGS (2)
  1. SERTRALINE HCL [Suspect]
  2. DIAZEPAM [Suspect]

REACTIONS (2)
  - COMA [None]
  - DRUG TOXICITY [None]
